FAERS Safety Report 10804560 (Version 1)
Quarter: 2015Q1

REPORT INFORMATION
  Report Type: Report from Study
  Country: US (occurrence: US)
  Receive Date: 20150217
  Receipt Date: 20150217
  Transmission Date: 20150721
  Serious: No
  Sender: FDA-Public Use
  Company Number: US-ABBVIE-14K-163-1247849-00

PATIENT
  Age: 50 Year
  Sex: Female

DRUGS (8)
  1. ASPIRIN. [Concomitant]
     Active Substance: ASPIRIN
     Indication: ANTICOAGULANT THERAPY
     Dosage: ONE LOW DOSE
  2. ZOLOFT [Concomitant]
     Active Substance: SERTRALINE HYDROCHLORIDE
     Indication: ANXIETY
  3. HUMIRA [Suspect]
     Active Substance: ADALIMUMAB
     Indication: PSORIASIS
     Dates: start: 20140522, end: 20140522
  4. ESTROVEN [Concomitant]
     Active Substance: DIETARY SUPPLEMENT
     Indication: HORMONE REPLACEMENT THERAPY
  5. ATORVASTATIN [Concomitant]
     Active Substance: ATORVASTATIN
     Indication: BLOOD CHOLESTEROL INCREASED
  6. LISINOPRIL. [Concomitant]
     Active Substance: LISINOPRIL
     Indication: HYPERTENSION
  7. HUMIRA [Suspect]
     Active Substance: ADALIMUMAB
     Dates: start: 20140607
  8. UNKNOWN CREAMS [Concomitant]
     Indication: PSORIASIS

REACTIONS (6)
  - Incorrect dose administered [Unknown]
  - Injection site pain [Unknown]
  - Wrong technique in drug usage process [Unknown]
  - Nausea [Unknown]
  - Device issue [Unknown]
  - Inappropriate schedule of drug administration [Recovered/Resolved]

NARRATIVE: CASE EVENT DATE: 20140522
